FAERS Safety Report 6226366-8 (Version None)
Quarter: 2009Q2

REPORT INFORMATION
  Report Type: 
  Country: None (occurrence: None)
  Receive Date: 20090612
  Receipt Date: 20090309
  Transmission Date: 20091009
  Serious: Yes (Death, Hospitalization)
  Sender: FDA-Public Use
  Company Number: GB-JNJFOC-20090603426

PATIENT
  Age: 22 Year
  Sex: Female

DRUGS (5)
  1. GRISEOFULVIN [Suspect]
     Indication: DRUG USE FOR UNKNOWN INDICATION
     Dosage: TOTAL DOSE COULD NOT HAVE EXCEEDED 1 MG
     Route: 065
  2. AMPICILLIN [Suspect]
     Indication: RESPIRATORY TRACT INFECTION
     Route: 065
  3. ERYTHROMYCIN [Suspect]
     Indication: RESPIRATORY TRACT INFECTION
     Route: 065
  4. PREDNISOLONE [Concomitant]
     Route: 065
  5. PREDNISOLONE [Concomitant]
     Indication: PROPHYLAXIS
     Route: 065

REACTIONS (7)
  - ASTHENIA [None]
  - GANGRENE [None]
  - GLOMERULONEPHRITIS PROLIFERATIVE [None]
  - MYOSITIS [None]
  - RENAL FAILURE [None]
  - SYSTEMIC LUPUS ERYTHEMATOSUS [None]
  - VASCULITIS [None]
